FAERS Safety Report 7218838-4 (Version None)
Quarter: 2011Q1

REPORT INFORMATION
  Report Type: 
  Country: None (occurrence: None)
  Receive Date: 20110110
  Receipt Date: 20110103
  Transmission Date: 20110831
  Serious: No
  Sender: FDA-Public Use
  Company Number: US-PFIZER INC-2011001493

PATIENT
  Sex: Female

DRUGS (4)
  1. ADVIL [Suspect]
     Dosage: 1 DF, 1X/DAY
  2. BETA BLOCKING AGENTS [Concomitant]
     Indication: HYPERTENSION
     Dosage: UNK
  3. DIURETICS [Concomitant]
     Indication: HYPERTENSION
     Dosage: UNK
  4. ACETYLSALICYLIC ACID [Concomitant]
     Dosage: 500 MG, 1X/DAY

REACTIONS (1)
  - OEDEMA PERIPHERAL [None]
